FAERS Safety Report 7264480-9 (Version None)
Quarter: 2011Q1

REPORT INFORMATION
  Report Type: 
  Country: None (occurrence: None)
  Receive Date: 20110131
  Receipt Date: 20110118
  Transmission Date: 20110831
  Serious: Yes (Other)
  Sender: FDA-Public Use
  Company Number: US-PFIZER INC-2011012407

PATIENT
  Sex: Female
  Weight: 68.027 kg

DRUGS (2)
  1. EFFEXOR XR [Suspect]
     Indication: DEPRESSION
     Dosage: 225 MG, DAILY
     Route: 048
     Dates: start: 20070101
  2. EFFEXOR XR [Suspect]
     Indication: ANXIETY

REACTIONS (10)
  - HOT FLUSH [None]
  - HEADACHE [None]
  - INSOMNIA [None]
  - MALAISE [None]
  - DRUG WITHDRAWAL SYNDROME [None]
  - PARAESTHESIA [None]
  - CRYING [None]
  - MIGRAINE [None]
  - FEELING ABNORMAL [None]
  - NAUSEA [None]
